FAERS Safety Report 6300636-7 (Version None)
Quarter: 2009Q3

REPORT INFORMATION
  Report Type: 
  Country: None (occurrence: None)
  Receive Date: 20090806
  Receipt Date: 20081218
  Transmission Date: 20100115
  Serious: Yes (Hospitalization)
  Sender: FDA-Public Use
  Company Number: US-ABBOTT-08P-163-0493636-00

PATIENT
  Sex: Female

DRUGS (11)
  1. DEPAKOTE ER [Suspect]
     Indication: NAUSEA
     Dosage: 500 MG TID PLUS 250 MG AT HS
     Route: 048
     Dates: start: 20060101, end: 20081201
  2. DEPAKOTE ER [Suspect]
  3. DEPAKOTE [Suspect]
     Indication: NAUSEA
     Dosage: 500 MG TID PLUS 250 MG AT HS
     Route: 048
     Dates: start: 20081201
  4. DEPAKOTE [Suspect]
  5. LIPITOR [Concomitant]
     Indication: BLOOD CHOLESTEROL INCREASED
     Route: 048
  6. LORAZEPAM [Concomitant]
     Indication: ANXIETY
     Route: 048
  7. PLAVIX [Concomitant]
     Indication: PROPHYLAXIS
     Route: 048
  8. LEVOTHYROXINE [Concomitant]
     Indication: HYPOTHYROIDISM
     Route: 048
  9. METOPROLOL SUCCINATE [Concomitant]
     Indication: CARDIAC DISORDER
     Route: 048
  10. MULTI-VITAMIN [Concomitant]
     Indication: DRUG USE FOR UNKNOWN INDICATION
     Dosage: UNKNOWN
     Route: 048
  11. ALLEGRA D 24 HOUR [Concomitant]
     Indication: HYPERSENSITIVITY

REACTIONS (2)
  - PNEUMONIA [None]
  - VOMITING [None]
